FAERS Safety Report 9295959 (Version 1)
Quarter: 2013Q2

REPORT INFORMATION
  Report Type: Report from Study
  Country: FR (occurrence: FR)
  Receive Date: 20130517
  Receipt Date: 20130517
  Transmission Date: 20140414
  Serious: Yes (Death)
  Sender: FDA-Public Use
  Company Number: FR-PFIZER INC-2013147887

PATIENT
  Age: 86 Year
  Sex: Male
  Weight: 80 kg

DRUGS (3)
  1. TIGECYCLINE [Suspect]
     Dosage: 50 MG, 2X/DAY
     Dates: start: 20081121, end: 20081129
  2. AMIKACIN [Concomitant]
     Dosage: UNK
     Dates: start: 20081121, end: 20081122
  3. AUGMENTIN [Concomitant]

REACTIONS (1)
  - Death [Fatal]
